FAERS Safety Report 9268612 (Version 1)
Quarter: 2013Q2

REPORT INFORMATION
  Report Type: Spontaneous
  Country: FR (occurrence: FR)
  Receive Date: 20130502
  Receipt Date: 20130502
  Transmission Date: 20140414
  Serious: Yes (Hospitalization)
  Sender: FDA-Public Use
  Company Number: FR-BAXTER-2013BAX015359

PATIENT
  Age: 79 Year
  Sex: Male

DRUGS (3)
  1. ENDOXAN 50 MG, COMPRIM? ENROB? [Suspect]
     Indication: B-CELL LYMPHOMA
     Route: 048
     Dates: start: 201203, end: 201208
  2. CHLORAMINOPHENE [Suspect]
     Indication: B-CELL LYMPHOMA
     Route: 048
     Dates: start: 201012, end: 201112
  3. FLUDARA [Suspect]
     Indication: B-CELL LYMPHOMA
     Route: 048
     Dates: start: 201203, end: 201208

REACTIONS (1)
  - Myelodysplastic syndrome [Not Recovered/Not Resolved]
